FAERS Safety Report 21073407 (Version 2)
Quarter: 2022Q3

REPORT INFORMATION
  Report Type: Spontaneous
  Country: US (occurrence: US)
  Receive Date: 20220713
  Receipt Date: 20220907
  Transmission Date: 20221026
  Serious: Yes (Other)
  Sender: FDA-Public Use
  Company Number: US-BRISTOL-MYERS SQUIBB COMPANY-2022-067693

PATIENT
  Age: 21 Year
  Sex: Female

DRUGS (1)
  1. THALOMID [Suspect]
     Active Substance: THALIDOMIDE
     Indication: Brain neoplasm malignant
     Dosage: FREQUENCY-DAILY
     Route: 048
     Dates: start: 202004

REACTIONS (3)
  - Full blood count decreased [Unknown]
  - Malignant neoplasm progression [Unknown]
  - Intentional product use issue [Unknown]
